FAERS Safety Report 7744239-6 (Version None)
Quarter: 2011Q3

REPORT INFORMATION
  Report Type: 
  Country: None (occurrence: None)
  Receive Date: 20110908
  Receipt Date: 20110824
  Transmission Date: 20111222
  Serious: Yes (Other)
  Sender: FDA-Public Use
  Company Number: TPA2011A05200

PATIENT
  Age: 75 Year
  Sex: Female

DRUGS (1)
  1. ACTOPLUS MET [Suspect]
     Dosage: 15/500 MG

REACTIONS (1)
  - BLADDER CANCER [None]
